FAERS Safety Report 18246362 (Version 1)
Quarter: 2020Q3

REPORT INFORMATION
  Report Type: Spontaneous
  Country: TR (occurrence: TR)
  Receive Date: 20200909
  Receipt Date: 20200909
  Transmission Date: 20201103
  Serious: Yes (Other)
  Sender: FDA-Public Use
  Company Number: TR-LUPIN PHARMACEUTICALS INC.-2020-05648

PATIENT
  Age: 74 Year
  Sex: Male

DRUGS (3)
  1. DICLOFENAC SODIUM. [Suspect]
     Active Substance: DICLOFENAC SODIUM
     Indication: TOOTHACHE
     Dosage: UNK (DOSE: 75 MG/3ML; FORMULATION: INJECTION)
     Route: 030
  2. OXYCODONE [Suspect]
     Active Substance: OXYCODONE
     Indication: SCIATIC NERVE NEUROPATHY
     Dosage: UNK
     Route: 065
  3. GABAPENTIN. [Suspect]
     Active Substance: GABAPENTIN
     Indication: SCIATIC NERVE NEUROPATHY
     Dosage: UNK
     Route: 065

REACTIONS (3)
  - Medication error [Unknown]
  - Drug ineffective [Unknown]
  - Sciatic nerve neuropathy [Not Recovered/Not Resolved]
